FAERS Safety Report 8064471-4 (Version None)
Quarter: 2012Q1

REPORT INFORMATION
  Report Type: 
  Country: None (occurrence: None)
  Receive Date: 20120123
  Receipt Date: 20120119
  Transmission Date: 20120608
  Serious: Yes (Hospitalization, Other)
  Sender: FDA-Public Use
  Company Number: PHEH2006US02051

PATIENT
  Sex: Female
  Weight: 76.19 kg

DRUGS (15)
  1. PREMPRO [Concomitant]
  2. ROBAXIN [Concomitant]
     Dosage: 750 MG,
  3. ZOLOFT [Concomitant]
     Indication: ANXIETY
     Dosage: 50 MG, BID
  4. PROTONIX [Concomitant]
     Dosage: 40 MG, QD
  5. CODEINE SULFATE [Concomitant]
  6. CHEMOTHERAPEUTICS NOS [Concomitant]
  7. ZOLOFT [Concomitant]
     Indication: DEPRESSION
  8. ZOMETA [Suspect]
     Indication: METASTASES TO BONE
     Dosage: 4 MG, QMO
     Dates: start: 20031229, end: 20051022
  9. FIORICET [Concomitant]
  10. AMBIEN [Concomitant]
  11. XANAX [Concomitant]
  12. CLARITIN-D [Concomitant]
  13. FEMARA [Concomitant]
     Indication: BREAST CANCER
  14. ZANTAC [Concomitant]
  15. RADIATION THERAPY [Concomitant]
     Indication: METASTASES TO SPINE

REACTIONS (45)
  - ORAL PAIN [None]
  - SWELLING FACE [None]
  - LOCAL SWELLING [None]
  - OSTEOMYELITIS [None]
  - RECTOCELE [None]
  - WEIGHT INCREASED [None]
  - OSTEONECROSIS OF JAW [None]
  - BONE DISORDER [None]
  - FACIAL PAIN [None]
  - TOOTH LOSS [None]
  - FEBRILE NEUTROPENIA [None]
  - HUMERUS FRACTURE [None]
  - TRISMUS [None]
  - ABSCESS JAW [None]
  - ORAL INFECTION [None]
  - LOOSE TOOTH [None]
  - UTERINE PROLAPSE [None]
  - ABDOMINAL DISCOMFORT [None]
  - METASTASES TO BONE [None]
  - HEPATOMEGALY [None]
  - TACHYCARDIA [None]
  - STOMATITIS [None]
  - MASTICATION DISORDER [None]
  - METASTASES TO LIVER [None]
  - SYSTEMIC LUPUS ERYTHEMATOSUS [None]
  - DEEP VEIN THROMBOSIS [None]
  - OSTEOSCLEROSIS [None]
  - CYSTOCELE [None]
  - DIZZINESS [None]
  - HYPERTENSION [None]
  - FALL [None]
  - GASTROENTERITIS CLOSTRIDIAL [None]
  - MALAISE [None]
  - DIARRHOEA [None]
  - HEAD INJURY [None]
  - NEOPLASM [None]
  - COMPRESSION FRACTURE [None]
  - TEMPOROMANDIBULAR JOINT SYNDROME [None]
  - BLOOD CHOLESTEROL INCREASED [None]
  - ABDOMINAL PAIN UPPER [None]
  - ASTHENIA [None]
  - ENTEROCELE [None]
  - SYNCOPE [None]
  - ARTHRITIS [None]
  - DYSPNOEA [None]
